FAERS Safety Report 16886298 (Version 1)
Quarter: 2019Q4

REPORT INFORMATION
  Report Type: Spontaneous
  Country: US (occurrence: US)
  Receive Date: 20191004
  Receipt Date: 20191004
  Transmission Date: 20200122
  Serious: No
  Sender: FDA-Public Use
  Company Number: None

PATIENT
  Age: 52 Year
  Sex: Female
  Weight: 92.25 kg

DRUGS (5)
  1. CLONAZEPAM 0.5MG BID [Concomitant]
     Dates: start: 20181029
  2. WELLBUTRIN XL 300MG QAM [Concomitant]
     Dates: start: 20171004
  3. LAMOTRIGINE. [Suspect]
     Active Substance: LAMOTRIGINE
     Indication: MAJOR DEPRESSION
     Route: 048
     Dates: start: 20190918, end: 20191004
  4. SEROQUEL 100MG QHS [Concomitant]
     Dates: start: 20180125
  5. LAMOTRIGINE. [Suspect]
     Active Substance: LAMOTRIGINE
     Indication: MAJOR DEPRESSION
     Dosage: ?          OTHER FREQUENCY:INCR 1 EA WK;?
     Route: 048
     Dates: start: 20190918, end: 20191004

REACTIONS (4)
  - Depression [None]
  - Anxiety [None]
  - Tachyphrenia [None]
  - Hallucination [None]

NARRATIVE: CASE EVENT DATE: 20190929
